FAERS Safety Report 22252227 (Version 1)
Quarter: 2023Q2

REPORT INFORMATION
  Report Type: Spontaneous
  Country: US (occurrence: US)
  Receive Date: 20230426
  Receipt Date: 20230426
  Transmission Date: 20230722
  Serious: No
  Sender: FDA-Public Use
  Company Number: US-PURDUE PHARMA-USA-2022-0299046

PATIENT
  Age: 61 Year

DRUGS (1)
  1. OXYCODONE HYDROCHLORIDE [Suspect]
     Active Substance: OXYCODONE HYDROCHLORIDE
     Indication: Pain
     Dosage: 10 MILLIGRAM
     Route: 048

REACTIONS (4)
  - Drug ineffective [Unknown]
  - Headache [Unknown]
  - Asthenia [Unknown]
  - Abdominal pain upper [Unknown]
